FAERS Safety Report 11568823 (Version 1)
Quarter: 2015Q3

REPORT INFORMATION
  Report Type: Spontaneous
  Country: US (occurrence: US)
  Receive Date: 20150916
  Receipt Date: 20150916
  Transmission Date: 20151125
  Serious: No
  Sender: FDA-Public Use
  Company Number: US-ELI_LILLY_AND_COMPANY-US200908005635

PATIENT
  Age: 55 Year
  Sex: Female
  Weight: 59.86 kg

DRUGS (9)
  1. MULTIVITAMIN [Concomitant]
     Active Substance: VITAMINS
  2. CITRACAL [Concomitant]
     Active Substance: CALCIUM CITRATE
  3. FISH OIL [Concomitant]
     Active Substance: FISH OIL
  4. ATIVAN [Concomitant]
     Active Substance: LORAZEPAM
     Dosage: UNK, UNKNOWN
  5. TYLENOL ARTHRITIS PAIN [Concomitant]
     Active Substance: ACETAMINOPHEN
     Dosage: UNK, UNKNOWN
  6. FORTEO [Suspect]
     Active Substance: TERIPARATIDE
     Indication: OSTEOPOROSIS
     Dosage: 20 UG, DAILY (1/D)
     Dates: start: 20080117, end: 20090817
  7. VITAMIN D [Concomitant]
     Active Substance: CHOLECALCIFEROL
  8. PROZAC [Concomitant]
     Active Substance: FLUOXETINE HYDROCHLORIDE
  9. CLOMIPRAMINE [Concomitant]
     Active Substance: CLOMIPRAMINE
     Dosage: UNK, UNKNOWN

REACTIONS (16)
  - Renal pain [Unknown]
  - Hypertension [Unknown]
  - Tremor [Unknown]
  - Chest pain [Unknown]
  - Vertigo [Unknown]
  - Palpitations [Unknown]
  - Fatigue [Unknown]
  - Pain [Unknown]
  - Memory impairment [Unknown]
  - Dizziness [Unknown]
  - Malaise [Unknown]
  - Heart rate irregular [Unknown]
  - Hepatic pain [Unknown]
  - Faeces discoloured [Unknown]
  - Asthenia [Unknown]
  - Chromaturia [Unknown]

NARRATIVE: CASE EVENT DATE: 200908
